FAERS Safety Report 5326429-5 (Version None)
Quarter: 2007Q2

REPORT INFORMATION
  Report Type: 
  Country: None (occurrence: None)
  Receive Date: 20070516
  Receipt Date: 20070510
  Transmission Date: 20071010
  Serious: Yes (Hospitalization, Other)
  Sender: FDA-Public Use
  Company Number: US-MERCK-0704USA02262

PATIENT
  Age: 85 Year
  Sex: Female
  Weight: 79 kg

DRUGS (4)
  1. FOSAMAX [Suspect]
     Indication: OSTEOPOROSIS
     Route: 048
     Dates: start: 19990120, end: 20051101
  2. FOSAMAX [Suspect]
     Route: 048
     Dates: end: 20070322
  3. ACIPHEX [Concomitant]
     Route: 065
     Dates: start: 20051101, end: 20060801
  4. NEXIUM [Concomitant]
     Route: 065
     Dates: start: 20060801, end: 20070101

REACTIONS (3)
  - EROSIVE OESOPHAGITIS [None]
  - GASTROINTESTINAL HAEMORRHAGE [None]
  - HIATUS HERNIA [None]
